FAERS Safety Report 5467406-3 (Version None)
Quarter: 2007Q3

REPORT INFORMATION
  Report Type: 
  Country: None (occurrence: None)
  Receive Date: 20070925
  Receipt Date: 20070913
  Transmission Date: 20080115
  Serious: Yes (Other)
  Sender: FDA-Public Use
  Company Number: GB-PFIZER INC-2007076970

PATIENT
  Age: 42 Year
  Sex: Female

DRUGS (2)
  1. CHAMPIX [Suspect]
     Route: 048
     Dates: start: 20070806, end: 20070827
  2. INSULIN [Concomitant]
     Route: 058

REACTIONS (2)
  - BACK PAIN [None]
  - MICTURITION URGENCY [None]
